FAERS Safety Report 9870143 (Version 2)
Quarter: 2014Q1

REPORT INFORMATION
  Report Type: Spontaneous
  Country: IT (occurrence: IT)
  Receive Date: 20140205
  Receipt Date: 20140205
  Transmission Date: 20141002
  Serious: Yes (Other)
  Sender: FDA-Public Use
  Company Number: IT-JNJFOC-20131107864

PATIENT
  Age: 26 Year
  Sex: Male
  Weight: 87 kg

DRUGS (3)
  1. REMICADE [Suspect]
     Indication: COLITIS ULCERATIVE
     Route: 042
     Dates: start: 20080513, end: 20130621
  2. FLEBOCORTID [Concomitant]
     Indication: PREMEDICATION
     Route: 042
     Dates: start: 20130621
  3. PENTACOL [Concomitant]
     Indication: COLITIS
     Route: 065
     Dates: end: 200201

REACTIONS (4)
  - Bronchospasm [Recovered/Resolved]
  - Sensation of foreign body [Recovered/Resolved]
  - Dyspnoea [Recovered/Resolved]
  - Infusion related reaction [Recovered/Resolved]
